FAERS Safety Report 5893639-8 (Version None)
Quarter: 2008Q3

REPORT INFORMATION
  Report Type: 
  Country: None (occurrence: None)
  Receive Date: 20080923
  Receipt Date: 20080703
  Transmission Date: 20090109
  Serious: No
  Sender: FDA-Public Use
  Company Number: US-ASTRAZENECA-2007UW22652

PATIENT
  Age: 18994 Day
  Sex: Female
  Weight: 61.4 kg

DRUGS (5)
  1. SEROQUEL [Suspect]
     Indication: POST-TRAUMATIC STRESS DISORDER
     Route: 048
     Dates: start: 20021004, end: 20050821
  2. SEROQUEL [Suspect]
     Indication: DEPRESSION
     Route: 048
     Dates: start: 20021004, end: 20050821
  3. SEROQUEL [Suspect]
     Indication: INSOMNIA
     Route: 048
     Dates: start: 20021004, end: 20050821
  4. TRAZODONE HCL [Concomitant]
     Dates: start: 19990928, end: 20070316
  5. WELLBUTRIN [Concomitant]
     Dosage: 75-150 MG
     Dates: start: 19990208, end: 19990704

REACTIONS (8)
  - AMNESIA [None]
  - CARDIAC DISORDER [None]
  - DIABETES MELLITUS [None]
  - EYELID OPERATION [None]
  - INFECTION [None]
  - MAMMOPLASTY [None]
  - PNEUMONIA [None]
  - SKIN GRAFT [None]
